FAERS Safety Report 18458113 (Version 1)
Quarter: 2020Q4

REPORT INFORMATION
  Report Type: Spontaneous
  Country: GB (occurrence: GB)
  Receive Date: 20201103
  Receipt Date: 20201103
  Transmission Date: 20210114
  Serious: Yes (Hospitalization)
  Sender: FDA-Public Use
  Company Number: GB-TEVA-2020-GB-1844102

PATIENT
  Age: 75 Year
  Sex: Male
  Weight: 82 kg

DRUGS (12)
  1. FERROUS SULFATE. [Concomitant]
     Active Substance: FERROUS SULFATE
     Dosage: 600 MG
  2. RIVAROXABAN [Concomitant]
     Active Substance: RIVAROXABAN
     Dosage: 20 MG
  3. CIPROFLOXACIN. [Concomitant]
     Active Substance: CIPROFLOXACIN
     Dosage: 500 MG
  4. FEXOFENADINE [Concomitant]
     Active Substance: FEXOFENADINE HYDROCHLORIDE
     Dosage: 200 MG
  5. LINEZOLID. [Suspect]
     Active Substance: LINEZOLID
     Indication: OSTEOMYELITIS
     Dosage: 1200 MG
     Route: 048
     Dates: start: 20200824, end: 20200912
  6. SIMVASTATIN. [Concomitant]
     Active Substance: SIMVASTATIN
     Dosage: 20 MG
  7. INDAPAMIDE. [Concomitant]
     Active Substance: INDAPAMIDE
     Dosage: 25 MG
  8. ACETYLSALICYLIC ACID [Concomitant]
     Active Substance: ASPIRIN
     Dosage: 75 MG
  9. NOVOMIX [Concomitant]
     Active Substance: INSULIN ASPART
     Dosage: PENFILL * 2 (22 IU)
  10. IRBESARTAN. [Concomitant]
     Active Substance: IRBESARTAN
     Dosage: 225 MG
  11. LANSOPRAZOLE. [Concomitant]
     Active Substance: LANSOPRAZOLE
     Dosage: 30 MG
  12. METFORMIN [Concomitant]
     Active Substance: METFORMIN HYDROCHLORIDE
     Dosage: 1000 MG

REACTIONS (5)
  - Syncope [Recovering/Resolving]
  - Back pain [Recovering/Resolving]
  - Malaise [Recovering/Resolving]
  - Anaemia [Recovering/Resolving]
  - Pain [Recovering/Resolving]

NARRATIVE: CASE EVENT DATE: 20200828
